FAERS Safety Report 16823012 (Version 2)
Quarter: 2019Q3

REPORT INFORMATION
  Report Type: Spontaneous
  Country: DK (occurrence: DK)
  Receive Date: 20190918
  Receipt Date: 20190918
  Transmission Date: 20191005
  Serious: Yes (Other)
  Sender: FDA-Public Use
  Company Number: PHHY2019DK214019

PATIENT
  Age: 12 Week
  Sex: Male

DRUGS (6)
  1. ASPIRIN. [Concomitant]
     Active Substance: ASPIRIN
     Indication: KAWASAKI^S DISEASE
     Dosage: 100 MG/KG, UNK
     Route: 065
  2. ANAKINRA [Concomitant]
     Active Substance: ANAKINRA
     Dosage: 10 UG/KG, QD (ON DAY 19)
     Route: 065
  3. METHYLPREDNISOLONE. [Suspect]
     Active Substance: METHYLPREDNISOLONE
     Indication: KAWASAKI^S DISEASE
     Dosage: 15 MG/KG, QD (ON DAY 12)
     Route: 065
  4. PREDNISOLONE. [Suspect]
     Active Substance: PREDNISOLONE
     Indication: KAWASAKI^S DISEASE
     Dosage: 2 MG/KG, QD
     Route: 048
  5. ANAKINRA [Concomitant]
     Active Substance: ANAKINRA
     Indication: KAWASAKI^S DISEASE
     Dosage: 5 UG/KG, QD (ON DAY 18)
     Route: 065
  6. INFLIXIMAB [Suspect]
     Active Substance: INFLIXIMAB
     Indication: KAWASAKI^S DISEASE
     Dosage: 5 MG/KG, UNK (ON DAY 3)
     Route: 065

REACTIONS (5)
  - Haemophagocytic lymphohistiocytosis [Unknown]
  - Product use in unapproved indication [Unknown]
  - Kawasaki^s disease [Unknown]
  - Leukocytosis [Unknown]
  - Platelet count increased [Unknown]
